FAERS Safety Report 9439264 (Version 1)
Quarter: 2013Q3

REPORT INFORMATION
  Report Type: Report from Study
  Country: US (occurrence: US)
  Receive Date: 20130804
  Receipt Date: 20130804
  Transmission Date: 20140515
  Serious: Yes (Other)
  Sender: FDA-Public Use
  Company Number: US-ROCHE-1253431

PATIENT
  Sex: Male

DRUGS (2)
  1. LUCENTIS [Suspect]
     Indication: CYSTOID MACULAR OEDEMA
     Route: 050
     Dates: start: 20130614
  2. AVASTIN [Suspect]
     Indication: CYSTOID MACULAR OEDEMA
     Route: 065
     Dates: start: 20121101, end: 20121228

REACTIONS (6)
  - Cystoid macular oedema [Unknown]
  - Retinal vein occlusion [Unknown]
  - Cataract nuclear [Unknown]
  - Macular fibrosis [Unknown]
  - Visual acuity reduced [Unknown]
  - Visual acuity reduced [Unknown]
